FAERS Safety Report 7265200-4 (Version None)
Quarter: 2011Q1

REPORT INFORMATION
  Report Type: 
  Country: None (occurrence: None)
  Receive Date: 20110131
  Receipt Date: 20110126
  Transmission Date: 20110831
  Serious: Yes (Death)
  Sender: FDA-Public Use
  Company Number: CA-ASTRAZENECA-2011SE04483

PATIENT
  Age: 50 Year
  Sex: Female

DRUGS (10)
  1. ENOXAPARIN [Concomitant]
     Route: 058
     Dates: start: 20101003, end: 20101024
  2. CLOXACILLIN SODIUM [Concomitant]
     Route: 042
     Dates: start: 20101022, end: 20101025
  3. DIPRIVAN [Suspect]
     Indication: STATUS EPILEPTICUS
     Dosage: 200-300 MG PER HOUR CONTINOUS INFUSION.
     Route: 042
  4. PHENOBARBITAL [Concomitant]
     Route: 042
     Dates: start: 20101006, end: 20101025
  5. TOPIRAMATE [Concomitant]
     Route: 048
     Dates: start: 20101021, end: 20101025
  6. LEVETIRACETAM [Concomitant]
     Route: 048
     Dates: start: 20101018, end: 20101025
  7. LEFLUNOMIDE [Concomitant]
     Route: 048
     Dates: start: 20101019, end: 20101025
  8. METOCLOPRAMIDE [Concomitant]
     Route: 042
     Dates: start: 20101024, end: 20101024
  9. PHENYTOIN [Concomitant]
     Route: 042
     Dates: start: 20101003, end: 20101025
  10. PREDNISONE [Concomitant]
     Route: 048
     Dates: start: 20101003, end: 20101025

REACTIONS (13)
  - CIRCULATORY COLLAPSE [None]
  - RENAL IMPAIRMENT [None]
  - MULTI-ORGAN FAILURE [None]
  - STATUS EPILEPTICUS [None]
  - BLOOD PRESSURE DECREASED [None]
  - ELECTROCONVULSIVE THERAPY [None]
  - ARRHYTHMIA [None]
  - HYPERLIPIDAEMIA [None]
  - LACTIC ACIDOSIS [None]
  - BRADYCARDIA [None]
  - CARDIAC ARREST [None]
  - DEATH [None]
  - CARDIAC INDEX DECREASED [None]
